FAERS Safety Report 12328802 (Version 1)
Quarter: 2016Q2

REPORT INFORMATION
  Report Type: Spontaneous
  Country: US (occurrence: US)
  Receive Date: 20160503
  Receipt Date: 20160503
  Transmission Date: 20160815
  Serious: No
  Sender: FDA-Public Use
  Company Number: US-BEH-2015050883

PATIENT
  Sex: Female
  Weight: 36 kg

DRUGS (11)
  1. RANITIDINE. [Concomitant]
     Active Substance: RANITIDINE
     Route: 048
  2. EPIPEN [Concomitant]
     Active Substance: EPINEPHRINE
     Indication: ANAPHYLACTIC REACTION
     Route: 030
  3. LIDOCAINE. [Concomitant]
     Active Substance: LIDOCAINE
     Dosage: 4%
     Route: 061
  4. SINGULAIR [Concomitant]
     Active Substance: MONTELUKAST SODIUM
     Route: 048
  5. XOPENEX [Concomitant]
     Active Substance: LEVALBUTEROL HYDROCHLORIDE
     Dosage: 2 PUFFS (90MCG)
     Route: 055
  6. DIPHENHYDRAMINE. [Concomitant]
     Active Substance: DIPHENHYDRAMINE
     Indication: ANAPHYLACTIC REACTION
     Route: 048
  7. MELOXICAM. [Concomitant]
     Active Substance: MELOXICAM
     Route: 048
  8. HIZENTRA [Suspect]
     Active Substance: HUMAN IMMUNOGLOBULIN G
     Indication: HYPOGAMMAGLOBULINAEMIA
     Dosage: 4 GM 20 ML VIAL
     Route: 058
  9. FLOVENT [Concomitant]
     Active Substance: FLUTICASONE PROPIONATE
     Dosage: 2 PUFFS BID
     Route: 055
  10. VERAMYST [Concomitant]
     Active Substance: FLUTICASONE FUROATE
     Dosage: 55MCG; 2 SPRAY DAILY
     Route: 045
  11. LEVOTHYROXINE. [Concomitant]
     Active Substance: LEVOTHYROXINE
     Route: 048

REACTIONS (2)
  - Administration site swelling [Unknown]
  - Administration site irritation [Unknown]
